FAERS Safety Report 8271669-9 (Version None)
Quarter: 2012Q1

REPORT INFORMATION
  Report Type: 
  Country: None (occurrence: None)
  Receive Date: 20120327
  Receipt Date: 20100520
  Transmission Date: 20120608
  Serious: Yes (Hospitalization, Other)
  Sender: FDA-Public Use
  Company Number: PHEH2009US18308

PATIENT
  Age: 34 Year
  Sex: Female
  Weight: 116.1 kg

DRUGS (7)
  1. FOLIC ACID [Concomitant]
  2. CLONAZEPAM [Concomitant]
  3. PROMETHAZINE [Concomitant]
  4. VALTREX [Concomitant]
  5. GLEEVEC [Suspect]
     Indication: MYELOID LEUKAEMIA
     Dosage: 600 MG/DAY, ORAL
     Route: 048
     Dates: start: 20071101
  6. ZANTAC [Concomitant]
  7. FERROUS SULFATE TAB [Concomitant]

REACTIONS (19)
  - DYSPNOEA [None]
  - NAUSEA [None]
  - PYREXIA [None]
  - HAEMATOCHEZIA [None]
  - DIARRHOEA [None]
  - MYALGIA [None]
  - BURSITIS [None]
  - FLUID RETENTION [None]
  - MUSCLE SPASMS [None]
  - HYPOKALAEMIA [None]
  - ANXIETY [None]
  - FATIGUE [None]
  - ULCER HAEMORRHAGE [None]
  - BONE PAIN [None]
  - OVERWEIGHT [None]
  - MALAISE [None]
  - OEDEMA [None]
  - HOT FLUSH [None]
  - VOMITING [None]
